FAERS Safety Report 9392235 (Version 1)
Quarter: 2013Q3

REPORT INFORMATION
  Report Type: Spontaneous
  Country: GB (occurrence: GB)
  Receive Date: 20130710
  Receipt Date: 20130710
  Transmission Date: 20140515
  Serious: Yes (Hospitalization)
  Sender: FDA-Public Use
  Company Number: GB-ROCHE-1223879

PATIENT
  Sex: 0

DRUGS (9)
  1. MABTHERA [Suspect]
     Indication: RHEUMATOID ARTHRITIS
     Route: 042
     Dates: start: 20130430
  2. HUMIRA [Concomitant]
     Route: 058
  3. SULFASALAZINE [Concomitant]
     Indication: RHEUMATOID ARTHRITIS
     Route: 065
  4. SULFASALAZINE [Concomitant]
     Route: 048
  5. METHOTREXATE [Concomitant]
     Indication: RHEUMATOID ARTHRITIS
     Route: 065
  6. FOLIC ACID [Concomitant]
     Route: 065
  7. HYDROXYCHLOROQUINE [Concomitant]
     Route: 048
  8. HYDROCORTISONE [Concomitant]
     Indication: ADDISON^S DISEASE
     Route: 048
  9. FLUDROCORTISONE [Concomitant]
     Indication: ADDISON^S DISEASE
     Route: 048

REACTIONS (6)
  - Pain in extremity [Recovered/Resolved]
  - Joint swelling [Recovered/Resolved]
  - Joint swelling [Unknown]
  - Rash macular [Unknown]
  - Rheumatoid arthritis [Unknown]
  - Local swelling [Unknown]
